FAERS Safety Report 7895176-8 (Version None)
Quarter: 2011Q4

REPORT INFORMATION
  Report Type: 
  Country: None (occurrence: None)
  Receive Date: 20111106
  Receipt Date: 20110823
  Transmission Date: 20120403
  Serious: No
  Sender: FDA-Public Use
  Company Number: US-AMGEN-USASP2011043128

PATIENT
  Sex: Female

DRUGS (1)
  1. ENBREL [Suspect]
     Indication: PSORIATIC ARTHROPATHY
     Dosage: 50 MG, QWK
     Dates: start: 20110701

REACTIONS (9)
  - COUGH [None]
  - LOOSE TOOTH [None]
  - INJECTION SITE REACTION [None]
  - DRUG INEFFECTIVE [None]
  - INJECTION SITE ERYTHEMA [None]
  - RHINORRHOEA [None]
  - PSORIATIC ARTHROPATHY [None]
  - TOOTH INFECTION [None]
  - TOOTHACHE [None]
